FAERS Safety Report 24603663 (Version 1)
Quarter: 2024Q4

REPORT INFORMATION
  Report Type: Spontaneous
  Country: US (occurrence: US)
  Receive Date: 20241111
  Receipt Date: 20241111
  Transmission Date: 20250114
  Serious: Yes (Other)
  Sender: AMGEN
  Company Number: US-AMGEN-USASP2024219974

PATIENT
  Age: 69 Year
  Sex: Male

DRUGS (6)
  1. IMDELLTRA [Suspect]
     Active Substance: TARLATAMAB-DLLE
     Indication: Small cell lung cancer
     Dosage: UNK, DOSE 1 DAY 1
     Route: 065
     Dates: start: 20240717, end: 20240717
  2. IMDELLTRA [Suspect]
     Active Substance: TARLATAMAB-DLLE
     Dosage: UNK, DOSE 2
     Route: 065
     Dates: start: 202407, end: 202407
  3. IMDELLTRA [Suspect]
     Active Substance: TARLATAMAB-DLLE
     Dosage: UNK, DOSE 3, DAY 15
     Route: 065
     Dates: start: 20240801, end: 20240801
  4. IMDELLTRA [Suspect]
     Active Substance: TARLATAMAB-DLLE
     Dosage: UNK, RESTARTED
     Route: 065
     Dates: start: 20241009, end: 20241009
  5. IMDELLTRA [Suspect]
     Active Substance: TARLATAMAB-DLLE
     Dosage: UNK, DOSES RESUMED
     Route: 065
     Dates: start: 20241024, end: 20241024
  6. IMDELLTRA [Suspect]
     Active Substance: TARLATAMAB-DLLE
     Dosage: UNK, CYCLE 1 DAY 15
     Route: 065
     Dates: start: 20241031

REACTIONS (3)
  - Ileus [Unknown]
  - Liver function test increased [Recovered/Resolved]
  - Ageusia [Unknown]

NARRATIVE: CASE EVENT DATE: 20241031
